FAERS Safety Report 16821339 (Version 2)
Quarter: 2019Q3

REPORT INFORMATION
  Report Type: Report from Study
  Country: US (occurrence: US)
  Receive Date: 20190918
  Receipt Date: 20190923
  Transmission Date: 20191005
  Serious: Yes (Death)
  Sender: FDA-Public Use
  Company Number: US-BAUSCH-BL-2019-026481

PATIENT
  Sex: Female

DRUGS (3)
  1. XIFAXAN [Suspect]
     Active Substance: RIFAXIMIN
     Indication: CIRRHOSIS ALCOHOLIC
  2. XIFAXAN [Suspect]
     Active Substance: RIFAXIMIN
     Indication: CONFUSIONAL STATE
  3. XIFAXAN [Suspect]
     Active Substance: RIFAXIMIN
     Indication: HEPATIC ENCEPHALOPATHY
     Route: 065
     Dates: end: 20190826

REACTIONS (3)
  - Chronic hepatic failure [Fatal]
  - Cirrhosis alcoholic [Fatal]
  - Inability to afford medication [Unknown]
